FAERS Safety Report 15709555 (Version 1)
Quarter: 2018Q4

REPORT INFORMATION
  Report Type: Spontaneous
  Country: KR (occurrence: KR)
  Receive Date: 20181211
  Receipt Date: 20181211
  Transmission Date: 20190205
  Serious: Yes (Other)
  Sender: FDA-Public Use
  Company Number: KR-PURACAP PHARMACEUTICAL LLC-2018EPC00486

PATIENT
  Age: 25 Year
  Sex: Male

DRUGS (1)
  1. DUTASTERIDE. [Suspect]
     Active Substance: DUTASTERIDE
     Indication: ALOPECIA
     Dosage: 0.5 MG EVERY OTHER DAY
     Route: 065

REACTIONS (2)
  - Papilloedema [Unknown]
  - Cerebral venous thrombosis [Unknown]
